FAERS Safety Report 12528372 (Version 8)
Quarter: 2025Q3

REPORT INFORMATION
  Report Type: Report from Study
  Country: EU (occurrence: EU)
  Receive Date: 20160705
  Receipt Date: 20250721
  Transmission Date: 20251020
  Serious: Yes (Other)
  Sender: BOEHRINGER INGELHEIM
  Company Number: EU-BOEHRINGER INGELHEIM GMBH, GERMANY-2016-BI-38737DE

PATIENT
  Age: 68 Year
  Sex: Female
  Weight: 64.8 kg

DRUGS (2)
  1. NINTEDANIB [Suspect]
     Active Substance: NINTEDANIB
     Indication: Lung adenocarcinoma
     Route: 048
     Dates: start: 20160404, end: 20160609
  2. DOCETAXEL [Suspect]
     Active Substance: DOCETAXEL
     Indication: Lung adenocarcinoma
     Route: 042

REACTIONS (5)
  - Pulmonary embolism [Recovered/Resolved]
  - Arthralgia [Recovered/Resolved]
  - Fatigue [Not Recovered/Not Resolved]
  - Myalgia [Not Recovered/Not Resolved]
  - Peripheral vein thrombosis [Recovered/Resolved]

NARRATIVE: CASE EVENT DATE: 20160404
